FAERS Safety Report 7547546-5 (Version None)
Quarter: 2011Q2

REPORT INFORMATION
  Report Type: 
  Country: None (occurrence: None)
  Receive Date: 20110614
  Receipt Date: 20110611
  Transmission Date: 20111010
  Serious: No
  Sender: FDA-Public Use
  Company Number: US-PFIZER INC-2011127780

PATIENT
  Sex: Female
  Weight: 42.2 kg

DRUGS (6)
  1. BONIVA [Concomitant]
     Dosage: UNK
  2. LYRICA [Suspect]
     Indication: MUSCULOSKELETAL PAIN
  3. LYRICA [Suspect]
     Indication: NECK PAIN
     Dosage: 50 MG, 1X/DAY
     Route: 048
     Dates: start: 20110608, end: 20110609
  4. LYRICA [Suspect]
     Indication: BACK PAIN
  5. MAGNESIUM [Concomitant]
     Dosage: UNK
  6. CALCIUM [Concomitant]
     Dosage: UNK

REACTIONS (2)
  - NAUSEA [None]
  - DIZZINESS [None]
